FAERS Safety Report 4515608-2 (Version None)
Quarter: 2004Q4

REPORT INFORMATION
  Report Type: 
  Country: None (occurrence: None)
  Receive Date: 20040928
  Receipt Date: 20040823
  Transmission Date: 20050328
  Serious: Yes (Hospitalization)
  Sender: FDA-Public Use
  Company Number: F(LIT)12/0804

PATIENT
  Age: 80 Year
  Sex: Male

DRUGS (2)
  1. AMOXICILLIN AND CLAVULANATE POTASSIUM [Suspect]
     Indication: BRONCHITIS ACUTE
     Dosage: 1500 MG TID ORAL
     Route: 048
  2. CIPROFLOXACIN [Suspect]
     Indication: BRONCHITIS ACUTE
     Dosage: 1000 MG BID ORAL
     Route: 048

REACTIONS (1)
  - HEPATITIS [None]
